FAERS Safety Report 22216489 (Version 1)
Quarter: 2023Q2

REPORT INFORMATION
  Report Type: Report from Study
  Country: BE (occurrence: BE)
  Receive Date: 20230417
  Receipt Date: 20230417
  Transmission Date: 20230722
  Serious: Yes (Death)
  Sender: FDA-Public Use
  Company Number: BE-Ipsen Biopharmaceuticals, Inc.-2023-08766

PATIENT
  Age: 58 Year
  Sex: Female

DRUGS (1)
  1. LANREOTIDE ACETATE [Suspect]
     Active Substance: LANREOTIDE ACETATE
     Indication: Product used for unknown indication
     Dosage: 1.00 INTO EVERY PER 4 WEEK
     Route: 058

REACTIONS (1)
  - Death [Fatal]

NARRATIVE: CASE EVENT DATE: 20230409
